FAERS Safety Report 4761780-9 (Version None)
Quarter: 2005Q3

REPORT INFORMATION
  Report Type: 
  Country: None (occurrence: None)
  Receive Date: 20050906
  Receipt Date: 20050830
  Transmission Date: 20060218
  Serious: Yes (Other)
  Sender: FDA-Public Use
  Company Number: JP-SOLVAY-00305002811

PATIENT
  Age: 20 Year
  Sex: Male

DRUGS (2)
  1. DEPROMEL 25 [Suspect]
     Indication: DEPRESSION
     Dosage: DAILY DOSE: 100 MILLIGRAM(S)
     Route: 048
     Dates: start: 20050725
  2. LIMAS [Suspect]
     Indication: BIPOLAR I DISORDER
     Dosage: DAILY DOSE: 400 MILLIGRAM(S)
     Route: 048
     Dates: start: 20050808, end: 20050810

REACTIONS (1)
  - NEUROLEPTIC MALIGNANT SYNDROME [None]
